FAERS Safety Report 20110646 (Version 1)
Quarter: 2021Q4

REPORT INFORMATION
  Report Type: Spontaneous
  Country: NL (occurrence: NL)
  Receive Date: 20211124
  Receipt Date: 20211124
  Transmission Date: 20220304
  Serious: Yes (Other)
  Sender: FDA-Public Use
  Company Number: None

PATIENT
  Age: 68 Year
  Sex: Female
  Weight: 104 kg

DRUGS (10)
  1. NAPROXEN [Suspect]
     Active Substance: NAPROXEN
     Indication: Rheumatic disorder
     Dosage: 1000 MILLIGRAM DAILY;  BRAND NAME NOT SPECIFIED
     Dates: start: 202110, end: 20211021
  2. ASPIRIN [Concomitant]
     Active Substance: ASPIRIN
     Dosage: 80 MG  ,BRAND NAME NOT SPECIFIED ,THERAPY START DATE :ASKU,THERAPY END DATE :ASKU
  3. EZETIMIBE [Concomitant]
     Active Substance: EZETIMIBE
     Dosage: 10 MG (MILLIGRAM), BRAND NAME NOT SPECIFIED,THERAPY START DATE :ASKU,THERAPY END DATE :ASKU
  4. METHOTREXATE (METHOTREXATE SODIUM) [Concomitant]
     Active Substance: METHOTREXATE SODIUM
     Dosage: 2,5 MG (MILLIGRAM),THERAPY START DATE :ASKU,THERAPY END DATE :ASKU, BRAND NAME NOT SPECIFIED
  5. METOPROLOL [Concomitant]
     Active Substance: METOPROLOL
     Dosage: 50 MG (MILLIGRAM),BRAND NAME NOT SPECIFIED,THERAPY START DATE :ASKU,THERAPY END DATE :ASKU
  6. ISORDIL [Concomitant]
     Active Substance: ISOSORBIDE DINITRATE
     Dosage: 5 MG (MILLIGRAM),THERAPY START DATE :ASKU,THERAPY END DATE :ASKU
  7. ACETAMINOPHEN [Concomitant]
     Active Substance: ACETAMINOPHEN
     Dosage: 500 MG (MILLIGRAM),BRAND NAME NOT SPECIFIED .THERAPY START DATE :ASKU,THERAPY END DATE :ASKU
  8. LOSARTAN [Concomitant]
     Active Substance: LOSARTAN
     Dosage: 100 MG (MILLIGRAM) , BRAND NAME NOT SPECIFIED,THERAPY START DATE :ASKU,THERAPY END DATE :ASKU
  9. FOLIC ACID [Concomitant]
     Active Substance: FOLIC ACID
     Dosage: 5 MG (MILLIGRAM), BRAND NAME NOT SPECIFIED ,THERAPY START DATE :ASKU,THERAPY END DATE :ASKU
  10. TICAGRELOR/ BRILIQUE [Concomitant]
     Dosage: 90 MG (MILLIGRAM),THERAPY START DATE :ASKU,THERAPY END DATE :ASKU

REACTIONS (5)
  - Hallucination [Recovered/Resolved]
  - Headache [Recovered/Resolved]
  - Chest pain [Recovered/Resolved]
  - Dizziness [Recovered/Resolved]
  - Dyspnoea [Recovered/Resolved]

NARRATIVE: CASE EVENT DATE: 20211021
